FAERS Safety Report 4648710-5 (Version None)
Quarter: 2005Q2

REPORT INFORMATION
  Report Type: 
  Country: None (occurrence: None)
  Receive Date: 20050427
  Receipt Date: 20050419
  Transmission Date: 20051028
  Serious: Yes (Hospitalization, Other)
  Sender: FDA-Public Use
  Company Number: 200510518GDS

PATIENT
  Age: 82 Year
  Sex: Female

DRUGS (12)
  1. AVELOX [Suspect]
     Indication: BRONCHITIS
     Dosage: 400 MG, QD, ORAL
     Route: 048
     Dates: start: 20050201
  2. ASAFLOW [Concomitant]
  3. STEOVIT D3 [Concomitant]
  4. PROLOPA [Concomitant]
  5. PAROXETINE HCL [Concomitant]
  6. DOLZAM [Concomitant]
  7. TRITRACE (RAMIPRIL) [Concomitant]
  8. BIOGLUCOSAMINE (GLUCOSAMINE) [Concomitant]
  9. ZANTAC [Concomitant]
  10. DAFALGAN [Concomitant]
  11. OXAZEPAM [Concomitant]
  12. MEDROL [Concomitant]

REACTIONS (1)
  - DIVERTICULUM INTESTINAL [None]
